FAERS Safety Report 4521836-2 (Version None)
Quarter: 2004Q4

REPORT INFORMATION
  Report Type: 
  Country: None (occurrence: None)
  Receive Date: 20041209
  Receipt Date: 20040816
  Transmission Date: 20050328
  Serious: Yes (Hospitalization)
  Sender: FDA-Public Use
  Company Number: US-JNJFOC-20040805278

PATIENT
  Sex: Male

DRUGS (8)
  1. VIADUR [Suspect]
     Indication: PROSTATE CANCER
     Route: 058
  2. CELEBREX [Concomitant]
  3. DIGITEK [Concomitant]
  4. LISINOPRIL [Concomitant]
  5. ISOSORBIDE [Concomitant]
  6. ASPIRIN [Concomitant]
  7. ZOCOR [Concomitant]
  8. ATENOLOL [Concomitant]

REACTIONS (4)
  - APPLICATION SITE INFECTION [None]
  - CELLULITIS [None]
  - PURULENCE [None]
  - STAPHYLOCOCCAL INFECTION [None]
